FAERS Safety Report 4302223-9 (Version None)
Quarter: 2004Q1

REPORT INFORMATION
  Report Type: 
  Country: None (occurrence: None)
  Receive Date: 20040220
  Receipt Date: 20040206
  Transmission Date: 20041129
  Serious: Yes (Hospitalization)
  Sender: FDA-Public Use
  Company Number: SE-SHR-04-021048

PATIENT
  Sex: Male

DRUGS (6)
  1. CAMPATH/MABCAMPATH (ALEMBUZUMAB) AMPULE [Suspect]
     Indication: CHRONIC LYMPHOCYTIC LEUKAEMIA
     Dosage: 30 MG, 3X/WEEK, SUBCUTANEOUS
     Route: 058
     Dates: start: 20030916, end: 20031216
  2. CIPROXIN  /DEN/ (CIPROFLOXACIN) [Concomitant]
  3. GEAVIR (ACICLOVIR) [Concomitant]
  4. DIFLUCAN [Concomitant]
  5. NEUPOGEN   /SWE/ (FILGRASTIM) [Concomitant]
  6. PENTACARINAT ^AVENTIS^ (PENTAMIDINE ISETHIONATE) [Concomitant]

REACTIONS (5)
  - CATHETER SEPSIS [None]
  - CHYLOTHORAX [None]
  - CYTOMEGALOVIRUS INFECTION [None]
  - HAEMOGLOBIN DECREASED [None]
  - PLATELET COUNT DECREASED [None]
